FAERS Safety Report 7503752-7 (Version None)
Quarter: 2011Q2

REPORT INFORMATION
  Report Type: 
  Country: None (occurrence: None)
  Receive Date: 20110525
  Receipt Date: 20110504
  Transmission Date: 20111010
  Serious: No
  Sender: FDA-Public Use
  Company Number: US-B.I. PHARMACEUTICALS,INC./RIDGEFIELD-2011-BP-07388BP

PATIENT
  Sex: Male

DRUGS (9)
  1. PRADAXA [Suspect]
     Indication: ATRIAL FIBRILLATION
     Dosage: 300 MG
     Route: 048
     Dates: start: 20110201
  2. PRADAXA [Suspect]
     Indication: ANTICOAGULANT THERAPY
  3. DILTIAZEM [Concomitant]
     Dosage: 210 MG
  4. ASPIRIN [Concomitant]
     Dosage: 81 MG
  5. PRADAXA [Suspect]
     Indication: HEART RATE DECREASED
  6. DIGOXIN [Concomitant]
     Dosage: 0.125 MG
  7. TRICOR [Concomitant]
     Dosage: 48 MG
  8. METOPROLOL TARTRATE [Concomitant]
     Dosage: 50 MG
  9. LIPITOR [Concomitant]
     Dosage: 20 MG

REACTIONS (1)
  - ARTHRALGIA [None]
